FAERS Safety Report 19053380 (Version 1)
Quarter: 2021Q1

REPORT INFORMATION
  Report Type: Report from Study
  Country: None (occurrence: US)
  Receive Date: 20210325
  Receipt Date: 20210325
  Transmission Date: 20210420
  Serious: Yes (Hospitalization, Other)
  Sender: FDA-Public Use
  Company Number: US-ABBVIE-21K-163-3828469-00

PATIENT
  Sex: Female

DRUGS (2)
  1. VENCLEXTA [Suspect]
     Active Substance: VENETOCLAX
     Indication: MYELODYSPLASTIC SYNDROME
     Dosage: MAINTENANCE DAILY DOSE, 100 MG PO DAY 1 TO 14
     Route: 048
     Dates: start: 20200826
  2. VIDAZA [Concomitant]
     Active Substance: AZACITIDINE
     Indication: PRODUCT USED FOR UNKNOWN INDICATION
     Dosage: DAY 1 TO 7 (28 DAY CYCLE)
     Dates: start: 20200826

REACTIONS (22)
  - Febrile neutropenia [Unknown]
  - Muscular weakness [Unknown]
  - Off label use [Unknown]
  - Nausea [Unknown]
  - Cytopenia [Unknown]
  - Panniculitis lobular [Unknown]
  - Epistaxis [Unknown]
  - Dyspnoea [Unknown]
  - Peripheral swelling [Unknown]
  - Haematochezia [Unknown]
  - Cellulitis [Unknown]
  - Decreased appetite [Unknown]
  - Lymphadenitis [Unknown]
  - Diarrhoea [Unknown]
  - Pulmonary oedema [Unknown]
  - Proctalgia [Unknown]
  - Sinusitis [Unknown]
  - Fatigue [Unknown]
  - Arthralgia [Unknown]
  - Anal ulcer [Unknown]
  - Hypoaesthesia [Unknown]
  - Contusion [Unknown]
